FAERS Safety Report 5083186-8 (Version None)
Quarter: 2006Q3

REPORT INFORMATION
  Report Type: 
  Country: None (occurrence: None)
  Receive Date: 20060818
  Receipt Date: 20060807
  Transmission Date: 20061208
  Serious: Yes (Hospitalization, Other)
  Sender: FDA-Public Use
  Company Number: PHEH2006US10071

PATIENT
  Age: 57 Year
  Sex: Male

DRUGS (1)
  1. AREDIA [Suspect]
     Dosage: 90 MG, QMO
     Dates: start: 20020628, end: 20041105

REACTIONS (7)
  - ABSCESS DRAINAGE [None]
  - BONE DISORDER [None]
  - GINGIVAL PAIN [None]
  - MASTICATION DISORDER [None]
  - OSTEOMYELITIS [None]
  - OSTEONECROSIS [None]
  - TOOTH ABSCESS [None]
